FAERS Safety Report 24179383 (Version 1)
Quarter: 2024Q3

REPORT INFORMATION
  Report Type: Spontaneous
  Country: US (occurrence: None)
  Receive Date: 20240805
  Receipt Date: 20240805
  Transmission Date: 20241017
  Serious: Yes (Hospitalization)
  Sender: Public
  Company Number: None

PATIENT
  Sex: Female

DRUGS (5)
  1. OPSUMIT [Suspect]
     Active Substance: MACITENTAN
     Indication: Pulmonary arterial hypertension
     Dosage: FREQUENCY : DAILY;?
     Route: 048
     Dates: start: 202211
  2. TADALAFIL [Concomitant]
     Active Substance: TADALAFIL
  3. SODIUM CHLORIDE [Concomitant]
     Active Substance: SODIUM CHLORIDE
  4. SOD CHLOR SDV [Concomitant]
  5. VELETRI SDV [Concomitant]

REACTIONS (2)
  - Pulmonary arterial hypertension [None]
  - Condition aggravated [None]
